FAERS Safety Report 6004305-2 (Version None)
Quarter: 2008Q4

REPORT INFORMATION
  Report Type: 
  Country: None (occurrence: None)
  Receive Date: 20081216
  Receipt Date: 20081205
  Transmission Date: 20090506
  Serious: Yes (Hospitalization)
  Sender: FDA-Public Use
  Company Number: US-BIOGENIDEC-2008BI031509

PATIENT
  Age: 44 Year
  Sex: Female

DRUGS (4)
  1. TYSABRI [Suspect]
     Indication: MULTIPLE SCLEROSIS
     Route: 042
     Dates: start: 20070430, end: 20080708
  2. NORVASC [Concomitant]
     Indication: DRUG USE FOR UNKNOWN INDICATION
  3. DETROL [Concomitant]
     Indication: DRUG USE FOR UNKNOWN INDICATION
  4. METOCLOPRAMIDE [Concomitant]
     Indication: DRUG USE FOR UNKNOWN INDICATION

REACTIONS (18)
  - ABASIA [None]
  - ABDOMINAL DISTENSION [None]
  - ATAXIA [None]
  - BALANCE DISORDER [None]
  - BURNING SENSATION [None]
  - COLITIS [None]
  - DIZZINESS [None]
  - GASTRIC ULCER [None]
  - GASTRITIS [None]
  - HERNIA [None]
  - HIATUS HERNIA [None]
  - HYPOPHAGIA [None]
  - INFUSION RELATED REACTION [None]
  - INTESTINAL OBSTRUCTION [None]
  - OESOPHAGITIS [None]
  - PEPTIC ULCER [None]
  - VOMITING [None]
  - WEIGHT DECREASED [None]
